FAERS Safety Report 17004689 (Version 5)
Quarter: 2022Q2

REPORT INFORMATION
  Report Type: Spontaneous
  Country: US (occurrence: US)
  Receive Date: 20191107
  Receipt Date: 20220504
  Transmission Date: 20220721
  Serious: No
  Sender: FDA-Public Use
  Company Number: US-PFIZER INC-2019482443

PATIENT
  Age: 62 Year
  Sex: Female

DRUGS (2)
  1. XELJANZ XR [Suspect]
     Active Substance: TOFACITINIB CITRATE
     Dosage: MG, 1X/DAY(A PILL AT NIGHT)
     Route: 048
  2. XELJANZ XR [Suspect]
     Active Substance: TOFACITINIB CITRATE
     Dosage: 11 MG (EVERY OTHER DAY)
     Route: 048

REACTIONS (5)
  - Intentional product misuse [Unknown]
  - Intentional dose omission [Unknown]
  - Malaise [Unknown]
  - Anxiety [Unknown]
  - Influenza [Unknown]

NARRATIVE: CASE EVENT DATE: 20200201
